FAERS Safety Report 11675975 (Version 1)
Quarter: 2015Q4

REPORT INFORMATION
  Report Type: Report from Study
  Country: JP (occurrence: JP)
  Receive Date: 20151028
  Receipt Date: 20151028
  Transmission Date: 20160304
  Serious: Yes (Death)
  Sender: FDA-Public Use
  Company Number: JP-REGENERON PHARMACEUTICALS, INC.-2015-13275

PATIENT

DRUGS (22)
  1. INFLUENZA HA VACCINE [Concomitant]
     Active Substance: INFLUENZA VIRUS VACCINE
     Indication: ANTIVIRAL PROPHYLAXIS
     Dosage: 0.5 ML, ONCE
     Route: 050
     Dates: start: 20141212, end: 20141212
  2. EYLEA [Suspect]
     Active Substance: AFLIBERCEPT
     Dosage: 50 ?L (RUN-IN TREATMENT)
     Dates: start: 20150904, end: 20150904
  3. BENOXIL [Concomitant]
     Active Substance: BENOXINATE HYDROCHLORIDE
     Dosage: ONCE PER STUDY DRUG APPLICATION, OPTIMUM DOSE
     Route: 047
     Dates: start: 20141128
  4. VISUDYNE [Suspect]
     Active Substance: VERTEPORFIN
     Indication: POLYPOIDAL CHOROIDAL VASCULOPATHY
     Dosage: UNK
  5. PRAVASTATIN SODIUM. [Concomitant]
     Active Substance: PRAVASTATIN SODIUM
     Indication: HYPERLIPIDAEMIA
     Dosage: 10 MG, QD
     Route: 048
     Dates: start: 2004
  6. TARIVID                            /00731801/ [Concomitant]
     Active Substance: OFLOXACIN
     Dosage: ONCE PER STUDY DRUG APPLICATION, OPTIMUM DOSE
     Route: 047
     Dates: start: 20141128
  7. OPHTHAGREEN [Concomitant]
     Dosage: 25 MG, ONCE PER ICGA
     Route: 042
     Dates: start: 20141107
  8. EYLEA [Suspect]
     Active Substance: AFLIBERCEPT
     Indication: POLYPOIDAL CHOROIDAL VASCULOPATHY
     Dosage: 50 ?L (RUN-IN TREATMENT)
     Dates: start: 20141128, end: 20141128
  9. EYLEA [Suspect]
     Active Substance: AFLIBERCEPT
     Dosage: 50 ?L (RUN-IN TREATMENT)
     Dates: start: 20150316, end: 20150316
  10. DILATE PLUS [Concomitant]
     Dosage: ONCE PER STUDY DRUG APPLICATION, OPTIMUM DOSE
     Route: 047
     Dates: start: 20141107
  11. EYLEA [Suspect]
     Active Substance: AFLIBERCEPT
     Dosage: 50 ?L (RUN-IN TREATMENT)
     Dates: start: 20141219, end: 20141219
  12. EYLEA [Suspect]
     Active Substance: AFLIBERCEPT
     Dosage: 50 ?L (RUN-IN TREATMENT)
     Dates: start: 20150508, end: 20150508
  13. AMLODIPIN [Concomitant]
     Active Substance: AMLODIPINE BESYLATE
     Indication: HYPERTENSION
     Dosage: 5 MG, QD
     Route: 048
     Dates: start: 2013
  14. HYALEIN [Concomitant]
     Active Substance: HYALURONATE SODIUM
     Indication: DRY EYE
     Dosage: 1 GTT, QID
     Route: 047
     Dates: start: 200304
  15. EYLEA [Suspect]
     Active Substance: AFLIBERCEPT
     Dosage: 50 ?L (RUN-IN TREATMENT)
     Dates: start: 20150623, end: 20150623
  16. PLACEBO [Suspect]
     Active Substance: UNSPECIFIED INGREDIENT
     Indication: POLYPOIDAL CHOROIDAL VASCULOPATHY
  17. CRAVIT [Concomitant]
     Active Substance: LEVOFLOXACIN
     Dosage: ONCE PER STUDY DRUG APPLICATION, OPTIMUM DOSE
     Route: 047
     Dates: start: 20141128
  18. FLUORESCEIN [Concomitant]
     Active Substance: FLUORESCEIN
     Dosage: 500 MG, ONCE PER FA
     Route: 042
     Dates: start: 20141107
  19. EYLEA [Suspect]
     Active Substance: AFLIBERCEPT
     Dosage: 50 ?L (RUN-IN TREATMENT)
     Dates: start: 20150710, end: 20150710
  20. BLINDED LASER [Suspect]
     Active Substance: DEVICE
     Indication: POLYPOIDAL CHOROIDAL VASCULOPATHY
  21. VEGAMOX [Concomitant]
     Active Substance: MOXIFLOXACIN HYDROCHLORIDE
     Dosage: 3 DAYS BEFORE AND 7 DAYS AFTER EVERY STUDY DRUG OPTIMUM DOSE
     Route: 047
     Dates: start: 20141125
  22. BANAN [Concomitant]
     Active Substance: CEFPODOXIME PROXETIL
     Dosage: 100 MG, BID, FROM STUDY APPLICATION DAY, 4 DAYS
     Route: 048
     Dates: start: 20141128

REACTIONS (1)
  - Arrhythmia [Fatal]

NARRATIVE: CASE EVENT DATE: 20151015
